FAERS Safety Report 9812537 (Version 1)
Quarter: 2014Q1

REPORT INFORMATION
  Report Type: Report from Study
  Country: CA (occurrence: CA)
  Receive Date: 20140113
  Receipt Date: 20140113
  Transmission Date: 20141002
  Serious: Yes (Other)
  Sender: FDA-Public Use
  Company Number: CA-JNJFOC-20140102785

PATIENT
  Age: 57 Year
  Sex: Female
  Weight: 90 kg

DRUGS (5)
  1. REMICADE [Suspect]
     Indication: RHEUMATOID ARTHRITIS
     Route: 042
     Dates: start: 20060804
  2. ARAVA [Concomitant]
     Route: 048
     Dates: start: 20060706
  3. LYRICA [Concomitant]
     Dosage: AT HOUR OF SLEEP (HS)
     Route: 048
     Dates: start: 20080402
  4. LYRICA [Concomitant]
     Dosage: IN AM
     Route: 048
     Dates: start: 20080402
  5. LIPITOR [Concomitant]
     Dosage: FROM 20 YEARS
     Route: 048

REACTIONS (2)
  - Sciatica [Recovered/Resolved]
  - Psoriasis [Unknown]
